FAERS Safety Report 10067898 (Version 2)
Quarter: 2014Q2

REPORT INFORMATION
  Report Type: Spontaneous
  Country: SE (occurrence: SE)
  Receive Date: 20140409
  Receipt Date: 20140409
  Transmission Date: 20141212
  Serious: Yes (Life-Threatening, Hospitalization)
  Sender: FDA-Public Use
  Company Number: SE-BAYER-2014-003836

PATIENT
  Age: 76 Year
  Sex: Male

DRUGS (2)
  1. CIPROXIN [Suspect]
     Indication: DIVERTICULITIS
     Dosage: 500 MG, BID
     Route: 048
     Dates: start: 20131231
  2. METRONIDAZOLE [Concomitant]

REACTIONS (1)
  - Convulsion [Not Recovered/Not Resolved]
